FAERS Safety Report 18461115 (Version 1)
Quarter: 2020Q4

REPORT INFORMATION
  Report Type: Spontaneous
  Country: US (occurrence: US)
  Receive Date: 20201104
  Receipt Date: 20201104
  Transmission Date: 20210114
  Serious: No
  Sender: FDA-Public Use
  Company Number: US-ASTRAZENECA-2020SF31782

PATIENT
  Sex: Male

DRUGS (2)
  1. LISINOPRIL AND HYDROCHLORTHIAZIDE [Concomitant]
     Active Substance: HYDROCHLOROTHIAZIDE\LISINOPRIL
     Indication: HYPERTENSION
     Dosage: 20/25
  2. XIGDUO XR [Suspect]
     Active Substance: DAPAGLIFLOZIN PROPANEDIOL\METFORMIN HYDROCHLORIDE
     Indication: TYPE 2 DIABETES MELLITUS
     Dosage: 5/1000 ; ONE PILL TWO TIMES A DAY
     Route: 048
     Dates: start: 2020, end: 20200917

REACTIONS (5)
  - Asthenia [Recovered/Resolved]
  - Weight decreased [Recovered/Resolved]
  - Pollakiuria [Recovered/Resolved]
  - Hypovolaemia [Recovered/Resolved]
  - Dizziness [Recovered/Resolved]
